FAERS Safety Report 6657117-0 (Version None)
Quarter: 2010Q1

REPORT INFORMATION
  Report Type: 
  Country: None (occurrence: None)
  Receive Date: 20100330
  Receipt Date: 20100322
  Transmission Date: 20100710
  Serious: Yes (Hospitalization)
  Sender: FDA-Public Use
  Company Number: GB-KINGPHARMUSA00001-K201000342

PATIENT
  Age: 47 Year
  Sex: Female

DRUGS (4)
  1. LEVOXYL [Suspect]
     Indication: BASEDOW'S DISEASE
     Dosage: 75 MCG, UNK
     Dates: start: 20070101, end: 20070620
  2. LEVOXYL [Suspect]
     Indication: HYPERTHYROIDISM
     Dosage: 75 MCG, UNK
     Dates: start: 20070101
  3. PROPYLTHIOURACIL [Suspect]
     Indication: BASEDOW'S DISEASE
     Dosage: UNK
     Dates: start: 20070101, end: 20070101
  4. PROPYLTHIOURACIL [Suspect]
     Indication: HYPERTHYROIDISM
     Dosage: 50 MG, QID
     Dates: start: 20070101

REACTIONS (7)
  - ACUTE PSYCHOSIS [None]
  - AGITATION [None]
  - HALLUCINATION, OLFACTORY [None]
  - HALLUCINATION, VISUAL [None]
  - PARANOIA [None]
  - PSYCHOMOTOR HYPERACTIVITY [None]
  - THYROID FUNCTION TEST ABNORMAL [None]
